FAERS Safety Report 25604523 (Version 1)
Quarter: 2025Q3

REPORT INFORMATION
  Report Type: Spontaneous
  Country: US (occurrence: US)
  Receive Date: 20250725
  Receipt Date: 20250725
  Transmission Date: 20251020
  Serious: Yes (Other)
  Sender: BAXTER
  Company Number: US-MLMSERVICE-20230705-4393773-1

PATIENT
  Age: 12 Month
  Sex: Male

DRUGS (7)
  1. DOXORUBICIN [Suspect]
     Active Substance: DOXORUBICIN
     Indication: Hepatoblastoma
     Route: 065
  2. FLUOROURACIL [Suspect]
     Active Substance: FLUOROURACIL
     Indication: Hepatoblastoma
     Route: 065
  3. CISPLATIN [Suspect]
     Active Substance: CISPLATIN
     Indication: Hepatoblastoma
     Route: 065
  4. CARBOPLATIN [Suspect]
     Active Substance: CARBOPLATIN
     Indication: Hepatoblastoma
     Route: 065
  5. VINCRISTINE [Suspect]
     Active Substance: VINCRISTINE
     Indication: Hepatoblastoma
     Route: 065
  6. ETOPOSIDE [Suspect]
     Active Substance: ETOPOSIDE
     Indication: Hepatoblastoma
     Route: 065
  7. IRINOTECAN [Suspect]
     Active Substance: IRINOTECAN
     Indication: Hepatoblastoma
     Route: 065

REACTIONS (6)
  - Deafness neurosensory [Unknown]
  - Respiratory failure [Unknown]
  - Septic shock [Unknown]
  - Cardiac arrest [Unknown]
  - Myelosuppression [Unknown]
  - Neutropenia [Unknown]
